FAERS Safety Report 6516461-8 (Version None)
Quarter: 2009Q4

REPORT INFORMATION
  Report Type: 
  Country: None (occurrence: None)
  Receive Date: 20091216
  Receipt Date: 20090724
  Transmission Date: 20100525
  Serious: Yes (Other)
  Sender: FDA-Public Use
  Company Number: 2009NI0159

PATIENT
  Age: 59 Year
  Sex: Male

DRUGS (2)
  1. NITROLINGUAL PUMPSPRAY [Suspect]
     Indication: CHEST PAIN
     Dosage: AS NEEDED
     Dates: end: 20090722
  2. NEXIUM [Concomitant]

REACTIONS (1)
  - DRUG INEFFECTIVE [None]
